FAERS Safety Report 21454903 (Version 1)
Quarter: 2022Q4

REPORT INFORMATION
  Report Type: Spontaneous
  Country: US (occurrence: US)
  Receive Date: 20221014
  Receipt Date: 20221014
  Transmission Date: 20230112
  Serious: No
  Sender: FDA-Public Use
  Company Number: US-GSK-US2022143944

PATIENT
  Age: 44 Year
  Sex: Female
  Weight: 90.72 kg

DRUGS (4)
  1. ADVAIR DISKUS [Suspect]
     Active Substance: FLUTICASONE PROPIONATE\SALMETEROL XINAFOATE
     Indication: Asthma
     Dosage: 500/50MCG 2 TIMES EVERY DAY IN MORNING AND EVENING; APPROXIMATELY 12HRS APART
     Dates: start: 201812
  2. LOSARTAN [Concomitant]
     Active Substance: LOSARTAN
     Indication: Hypertension
     Dosage: PATIENT STATES SHE DOES NOT REMEMBER DOSAGE OR STRENGTH; AND WAS NOT HOME TO VIEW CONTAINER
     Dates: start: 201812
  3. ALBUTEROL [Concomitant]
     Active Substance: ALBUTEROL
     Indication: Asthma
     Dosage: 90 UG, BID
     Dates: start: 201812
  4. MONTELUKAST [Concomitant]
     Active Substance: MONTELUKAST SODIUM
     Indication: Hypersensitivity
     Dosage: 10 MG, Z AT NIGHT
     Route: 048

REACTIONS (1)
  - COVID-19 [Recovered/Resolved]

NARRATIVE: CASE EVENT DATE: 20220816
